FAERS Safety Report 10632517 (Version 1)
Quarter: 2014Q4

REPORT INFORMATION
  Report Type: Spontaneous
  Country: US (occurrence: None)
  Receive Date: 20141203
  Receipt Date: 20141203
  Transmission Date: 20150529
  Serious: No
  Sender: FDA-Public Use
  Company Number: None

PATIENT

DRUGS (1)
  1. ACETAMINOPHEN. [Suspect]
     Active Substance: ACETAMINOPHEN
     Dosage: DOSAGE FORM: SUSPENSION, ADM ROUTE: ORAL, STRENGTH: 160 MG/5 ML, TYPE: BOTTLE, SIZE: 4 FL OZ (118 ML)
     Route: 048

REACTIONS (3)
  - Circumstance or information capable of leading to medication error [None]
  - Product quality issue [None]
  - Product label confusion [None]
